FAERS Safety Report 18527937 (Version 2)
Quarter: 2020Q4

REPORT INFORMATION
  Report Type: Report from Study
  Country: JP (occurrence: JP)
  Receive Date: 20201120
  Receipt Date: 20201230
  Transmission Date: 20210114
  Serious: Yes (Other)
  Sender: FDA-Public Use
  Company Number: JP-JNJFOC-20201125904

PATIENT
  Age: 70 Year
  Sex: Female

DRUGS (4)
  1. TREMFYA [Suspect]
     Active Substance: GUSELKUMAB
     Indication: PALMOPLANTAR PUSTULOSIS
     Route: 058
     Dates: start: 20191001
  2. TREMFYA [Suspect]
     Active Substance: GUSELKUMAB
  3. TIGASON                            /00530101/ [Concomitant]
     Active Substance: ETRETINATE
     Indication: PRODUCT USED FOR UNKNOWN INDICATION
     Route: 048
  4. TREMFYA [Suspect]
     Active Substance: GUSELKUMAB

REACTIONS (1)
  - Pneumonia [Unknown]
